FAERS Safety Report 5270567-2 (Version None)
Quarter: 2007Q1

REPORT INFORMATION
  Report Type: 
  Country: None (occurrence: None)
  Receive Date: 20070315
  Receipt Date: 20070306
  Transmission Date: 20070707
  Serious: Yes (Other)
  Sender: FDA-Public Use
  Company Number: 2007AL000937

PATIENT
  Age: 74 Year
  Sex: Male

DRUGS (4)
  1. DIGOXIN [Suspect]
     Dosage: 250 BQ; TID; PO
     Route: 048
  2. COUMADIN [Concomitant]
  3. LASIX [Concomitant]
  4. NEO-MERCAZOLE TAB [Concomitant]

REACTIONS (13)
  - ACCIDENTAL OVERDOSE [None]
  - ANOREXIA [None]
  - FOOD AVERSION [None]
  - HEART RATE DECREASED [None]
  - HEART RATE IRREGULAR [None]
  - MALAISE [None]
  - NAUSEA [None]
  - OEDEMA [None]
  - STOMACH DISCOMFORT [None]
  - THERAPEUTIC AGENT TOXICITY [None]
  - VISION BLURRED [None]
  - VISUAL DISTURBANCE [None]
  - XANTHOPSIA [None]
